FAERS Safety Report 20722130 (Version 1)
Quarter: 2022Q2

REPORT INFORMATION
  Report Type: Spontaneous
  Country: US (occurrence: US)
  Receive Date: 20220418
  Receipt Date: 20220418
  Transmission Date: 20220721
  Serious: No
  Sender: FDA-Public Use
  Company Number: US-ABBVIE-21K-163-4168569-00

PATIENT

DRUGS (1)
  1. LUPRON [Suspect]
     Active Substance: LEUPROLIDE ACETATE
     Indication: Precocious puberty
     Route: 065

REACTIONS (4)
  - Hand deformity [Unknown]
  - Foot deformity [Unknown]
  - Breast disorder [Unknown]
  - Weight increased [Unknown]
